FAERS Safety Report 18421189 (Version 1)
Quarter: 2020Q4

REPORT INFORMATION
  Report Type: Spontaneous
  Country: HU (occurrence: HU)
  Receive Date: 20201023
  Receipt Date: 20201023
  Transmission Date: 20210114
  Serious: Yes (Other)
  Sender: FDA-Public Use
  Company Number: NVSC2020HU280085

PATIENT
  Age: 65 Year
  Sex: Male

DRUGS (7)
  1. TASIGNA [Suspect]
     Active Substance: NILOTINIB
     Dosage: 200 MG, BID
     Route: 065
  2. HYDROXYUREA. [Concomitant]
     Active Substance: HYDROXYUREA
     Indication: PRODUCT USED FOR UNKNOWN INDICATION
     Dosage: UNK
     Route: 065
     Dates: start: 20130930
  3. TASIGNA [Suspect]
     Active Substance: NILOTINIB
     Dosage: 400 MG, BID
     Route: 065
     Dates: start: 2018
  4. TASIGNA [Suspect]
     Active Substance: NILOTINIB
     Dosage: 600 MG, DAILY
     Route: 065
     Dates: start: 201902
  5. BOSUTINIB [Concomitant]
     Active Substance: BOSUTINIB
     Indication: PRODUCT USED FOR UNKNOWN INDICATION
     Dosage: UNK
     Route: 065
     Dates: start: 201809, end: 2018
  6. TASIGNA [Suspect]
     Active Substance: NILOTINIB
     Indication: CHRONIC MYELOID LEUKAEMIA
     Dosage: 400 MG, BID
     Route: 065
     Dates: start: 20160511, end: 201809
  7. TASIGNA [Suspect]
     Active Substance: NILOTINIB
     Dosage: 600 MG (400 MG AND 600 MG)  DAILY ALTERNATELY
     Route: 065

REACTIONS (12)
  - Hypertension [Unknown]
  - Ventricular extrasystoles [Unknown]
  - Platelet count increased [Unknown]
  - Tricuspid valve incompetence [Unknown]
  - Aortic valve calcification [Unknown]
  - Left ventricular hypertrophy [Unknown]
  - Angina pectoris [Unknown]
  - Diarrhoea [Recovered/Resolved]
  - Left ventricular dysfunction [Unknown]
  - Mitral valve incompetence [Unknown]
  - White blood cell count increased [Unknown]
  - Mitral valve calcification [Unknown]

NARRATIVE: CASE EVENT DATE: 2016
